FAERS Safety Report 6495277-5 (Version None)
Quarter: 2009Q4

REPORT INFORMATION
  Report Type: 
  Country: None (occurrence: None)
  Receive Date: 20091214
  Receipt Date: 20090521
  Transmission Date: 20100525
  Serious: No
  Sender: FDA-Public Use
  Company Number: US-BRISTOL-MYERS SQUIBB COMPANY-14633507

PATIENT
  Age: 22 Year
  Sex: Male

DRUGS (7)
  1. ABILIFY [Suspect]
     Indication: DRUG ABUSE
     Dates: start: 20090101
  2. ABILIFY [Suspect]
     Indication: DEPRESSION
     Dates: start: 20090101
  3. ABILIFY [Suspect]
     Indication: BIPOLAR DISORDER
     Dates: start: 20090101
  4. METHADONE [Suspect]
     Indication: DRUG ABUSE
  5. METHADONE [Suspect]
     Indication: DEPRESSION
  6. METHADONE [Suspect]
     Indication: BIPOLAR DISORDER
  7. CLONAZEPAM [Concomitant]

REACTIONS (6)
  - CHILLS [None]
  - DECREASED APPETITE [None]
  - FATIGUE [None]
  - MUSCLE SPASMS [None]
  - PAIN [None]
  - TREMOR [None]
